FAERS Safety Report 18570602 (Version 1)
Quarter: 2020Q4

REPORT INFORMATION
  Report Type: Spontaneous
  Country: US (occurrence: US)
  Receive Date: 20201202
  Receipt Date: 20201202
  Transmission Date: 20210114
  Serious: Yes (Hospitalization)
  Sender: FDA-Public Use
  Company Number: US-BTGSP-US-BTGSP-20-1291

PATIENT

DRUGS (3)
  1. CROFAB [Suspect]
     Active Substance: CROTALIDAE POLYVALENT IMMUNE FAB (OVINE)
     Dosage: MAINTENANCE DOSE OF 2 VIALS EVERY 6 HOURS FOR 3 DOSES
     Route: 065
  2. CROFAB [Suspect]
     Active Substance: CROTALIDAE POLYVALENT IMMUNE FAB (OVINE)
     Dosage: 2 VIALS AS NEEDED FOR RE-EMERGING SYMPTOMS
     Route: 065
  3. CROFAB [Suspect]
     Active Substance: CROTALIDAE POLYVALENT IMMUNE FAB (OVINE)
     Indication: SNAKE BITE
     Dosage: INITIAL DOSE OF 4-6 VIALS
     Route: 065

REACTIONS (2)
  - Laboratory test abnormal [Unknown]
  - Gingival bleeding [Unknown]
